FAERS Safety Report 19402720 (Version 2)
Quarter: 2021Q2

REPORT INFORMATION
  Report Type: Spontaneous
  Country: US (occurrence: US)
  Receive Date: 20210610
  Receipt Date: 20210610
  Transmission Date: 20210717
  Serious: No
  Sender: FDA-Public Use
  Company Number: US-GALDERMA-US2021008770

PATIENT
  Age: 41 Year
  Sex: Female

DRUGS (3)
  1. AKLIEF [Suspect]
     Active Substance: TRIFAROTENE
     Dosage: 0.005%
     Route: 061
     Dates: start: 20210405
  2. AKLIEF [Suspect]
     Active Substance: TRIFAROTENE
     Indication: ACNE
     Dosage: 50 MICROGRAM/ G (0.005%)
     Route: 061
     Dates: start: 20210329
  3. ACZONE [Concomitant]
     Active Substance: DAPSONE
     Indication: ACNE
     Route: 061
     Dates: start: 20210329, end: 20210405

REACTIONS (4)
  - Dry skin [Not Recovered/Not Resolved]
  - Skin exfoliation [Not Recovered/Not Resolved]
  - Intentional product misuse [Recovered/Resolved]
  - Intentional underdose [Recovered/Resolved]

NARRATIVE: CASE EVENT DATE: 20210405
